FAERS Safety Report 14354411 (Version 1)
Quarter: 2018Q1

REPORT INFORMATION
  Report Type: Spontaneous
  Country: US (occurrence: US)
  Receive Date: 20180105
  Receipt Date: 20180105
  Transmission Date: 20180509
  Serious: Yes (Other)
  Sender: FDA-Public Use
  Company Number: US-ASTRAZENECA-2018SE01357

PATIENT
  Sex: Female

DRUGS (1)
  1. FARXIGA [Suspect]
     Active Substance: DAPAGLIFLOZIN PROPANEDIOL
     Route: 048

REACTIONS (9)
  - Renal failure [Unknown]
  - Dehydration [Unknown]
  - Kidney infection [Unknown]
  - Stomatitis [Unknown]
  - Polyuria [Unknown]
  - Fungal infection [Unknown]
  - Hypoglycaemia [Unknown]
  - Cystitis [Unknown]
  - Dry mouth [Unknown]
